FAERS Safety Report 21563351 (Version 3)
Quarter: 2024Q1

REPORT INFORMATION
  Report Type: Spontaneous
  Country: US (occurrence: US)
  Receive Date: 20221108
  Receipt Date: 20240112
  Transmission Date: 20240410
  Serious: Yes (Other)
  Sender: FDA-Public Use
  Company Number: US-BEH-2022151488

PATIENT
  Age: 54 Year
  Sex: Male

DRUGS (4)
  1. HAEGARDA [Suspect]
     Active Substance: HUMAN C1-ESTERASE INHIBITOR
     Indication: Hereditary angioedema
     Dosage: 3000 INTERNATIONAL UNIT, BIW
     Route: 058
     Dates: start: 201902
  2. HAEGARDA [Suspect]
     Active Substance: HUMAN C1-ESTERASE INHIBITOR
     Indication: Prophylaxis
     Dosage: 3000 INTERNATIONAL UNIT, BIW
     Route: 058
     Dates: start: 20190227
  3. HAEGARDA [Suspect]
     Active Substance: HUMAN C1-ESTERASE INHIBITOR
     Indication: Hereditary angioedema
     Dosage: 2000 INTERNATIONAL UNIT, BIW
     Route: 058
     Dates: start: 201902
  4. HAEGARDA [Suspect]
     Active Substance: HUMAN C1-ESTERASE INHIBITOR
     Indication: Prophylaxis
     Dosage: 2000 INTERNATIONAL UNIT, BIW
     Route: 058
     Dates: start: 20190228

REACTIONS (12)
  - Hereditary angioedema [Recovered/Resolved]
  - Insurance issue [Recovered/Resolved]
  - Hereditary angioedema [Unknown]
  - Product distribution issue [Unknown]
  - Therapy interrupted [Unknown]
  - Hereditary angioedema [Unknown]
  - Product distribution issue [Unknown]
  - Therapy interrupted [Unknown]
  - Hereditary angioedema [Recovered/Resolved]
  - Abdominal pain [Recovered/Resolved]
  - Hyperhidrosis [Recovered/Resolved]
  - Hypophagia [Recovered/Resolved]

NARRATIVE: CASE EVENT DATE: 20220901
